FAERS Safety Report 19203516 (Version 6)
Quarter: 2023Q1

REPORT INFORMATION
  Report Type: Other
  Country: US (occurrence: None)
  Receive Date: 20210503
  Receipt Date: 20230328
  Transmission Date: 20230418
  Serious: Yes (Hospitalization, Other)
  Sender: FDA-Public Use
  Company Number: US-ROCHE-2818444

PATIENT
  Age: 78 Year
  Sex: Female
  Weight: 59.020 kg

DRUGS (6)
  1. OCREVUS [Suspect]
     Active Substance: OCRELIZUMAB
     Indication: Primary progressive multiple sclerosis
     Dosage: SECOND HALF SPLIT DOSE IN EARLY JAN/2020?DATE OF TREATMENT: 06/JUL/2020, 04/JAN/2021
     Route: 041
     Dates: start: 20191223
  2. OCREVUS [Suspect]
     Active Substance: OCRELIZUMAB
     Route: 042
  3. THYROXINE [Concomitant]
     Active Substance: LEVOTHYROXINE
     Indication: Hypothyroidism
     Dosage: ONGOING; UNKNOWN
  4. SPIRONOLACTONE [Concomitant]
     Active Substance: SPIRONOLACTONE
     Dosage: ONGOING : UNKNOWN
  5. ATORVASTATIN [Concomitant]
     Active Substance: ATORVASTATIN
     Indication: Hyperlipidaemia
     Dosage: ONGOING : UNKNOWN
  6. ATENOLOL [Concomitant]
     Active Substance: ATENOLOL
     Indication: Atrial tachycardia
     Dosage: ONGOING; UNKNOWN

REACTIONS (12)
  - Localised infection [Recovered/Resolved]
  - Multiple sclerosis [Not Recovered/Not Resolved]
  - Fall [Unknown]
  - Confusional state [Not Recovered/Not Resolved]
  - Agitation [Not Recovered/Not Resolved]
  - Skin lesion [Not Recovered/Not Resolved]
  - Skin laceration [Recovered/Resolved]
  - Muscle atrophy [Not Recovered/Not Resolved]
  - Drug ineffective [Unknown]
  - Irritability [Unknown]
  - General physical health deterioration [Unknown]
  - Dysarthria [Not Recovered/Not Resolved]

NARRATIVE: CASE EVENT DATE: 20201101
